FAERS Safety Report 5802105-7 (Version None)
Quarter: 2008Q3

REPORT INFORMATION
  Report Type: 
  Country: None (occurrence: None)
  Receive Date: 20080707
  Receipt Date: 20080626
  Transmission Date: 20090109
  Serious: Yes (Other)
  Sender: FDA-Public Use
  Company Number: PHHY2008US12430

PATIENT
  Sex: Male

DRUGS (2)
  1. LIORESAL [Suspect]
     Indication: MUSCLE SPASTICITY
     Dosage: 1000 MCG/ML
     Route: 037
  2. BACLOFEN [Concomitant]
     Dosage: 2500 MCG/ML
     Route: 037

REACTIONS (2)
  - DRUG INEFFECTIVE [None]
  - MUSCLE SPASTICITY [None]
